FAERS Safety Report 14720471 (Version 2)
Quarter: 2018Q2

REPORT INFORMATION
  Report Type: Spontaneous
  Country: ES (occurrence: ES)
  Receive Date: 20180405
  Receipt Date: 20180413
  Transmission Date: 20180711
  Serious: Yes (Hospitalization)
  Sender: FDA-Public Use
  Company Number: ES-ASTRAZENECA-2018SE42335

PATIENT
  Sex: Female
  Weight: 82 kg

DRUGS (16)
  1. DAPAGLIFLOZIN. [Suspect]
     Active Substance: DAPAGLIFLOZIN
     Route: 048
  2. HUMALAG INSULIN [Concomitant]
     Indication: DIABETES MELLITUS
     Dosage: PRN
     Route: 058
  3. ZELDOX [Concomitant]
     Active Substance: ZIPRASIDONE
     Route: 048
  4. DEPREX [Concomitant]
     Indication: SCHIZOPHRENIA
     Route: 048
  5. HYDROFEROL [Concomitant]
     Indication: VITAMIN D DEFICIENCY
     Dosage: .266MG BIMO
     Route: 048
  6. ETUMINA [Concomitant]
     Active Substance: CLOTHIAPINE
     Indication: SCHIZOPHRENIA
     Route: 048
  7. ATORVASTATIN [Concomitant]
     Active Substance: ATORVASTATIN
     Indication: DIABETES MELLITUS
     Route: 048
  8. OMEPRAZOLE. [Concomitant]
     Active Substance: OMEPRAZOLE
     Indication: GASTRIC DISORDER
  9. ADIRO [Concomitant]
     Active Substance: ASPIRIN
     Indication: DIABETES MELLITUS
     Route: 048
  10. TOUJEO INSULIN [Concomitant]
     Indication: DIABETES MELLITUS
     Dosage: 34 IU DAILY
     Route: 058
     Dates: start: 20160419
  11. ABILIFY [Concomitant]
     Active Substance: ARIPIPRAZOLE
     Indication: SCHIZOPHRENIA
     Route: 048
  12. EUTIROX [Concomitant]
     Active Substance: LEVOTHYROXINE SODIUM
     Indication: HYPOTHYROIDISM
     Route: 048
  13. TARDYFERON [Concomitant]
     Active Substance: FERROUS SULFATE
  14. ESCITALOPRAM [Concomitant]
     Active Substance: ESCITALOPRAM OXALATE
     Indication: SCHIZOPHRENIA
     Route: 048
  15. XIGDUO XR [Suspect]
     Active Substance: DAPAGLIFLOZIN PROPANEDIOL\METFORMIN HYDROCHLORIDE
     Indication: DIABETES MELLITUS
     Route: 048
     Dates: start: 20171219, end: 20180322
  16. ATACAND [Concomitant]
     Active Substance: CANDESARTAN CILEXETIL
     Indication: HYPERTENSION
     Route: 048

REACTIONS (1)
  - Diabetic foot [Not Recovered/Not Resolved]
